FAERS Safety Report 5898795-3 (Version None)
Quarter: 2008Q3

REPORT INFORMATION
  Report Type: 
  Country: None (occurrence: None)
  Receive Date: 20080925
  Receipt Date: 20080620
  Transmission Date: 20090109
  Serious: No
  Sender: FDA-Public Use
  Company Number: A0734138A

PATIENT
  Age: 54 Year
  Sex: Female

DRUGS (4)
  1. WELLBUTRIN [Suspect]
     Indication: DEPRESSION
     Dosage: 300MG PER DAY
     Route: 048
     Dates: start: 20030601
  2. TRAMADOL HCL [Suspect]
     Route: 065
  3. LIMBITRYL [Concomitant]
  4. HYDROXYCHLOROQUINE [Concomitant]

REACTIONS (5)
  - CHEST DISCOMFORT [None]
  - DRUG INTERACTION [None]
  - HYPERVIGILANCE [None]
  - ILL-DEFINED DISORDER [None]
  - VISUAL IMPAIRMENT [None]
